FAERS Safety Report 4273143-3 (Version None)
Quarter: 2004Q1

REPORT INFORMATION
  Report Type: 
  Country: None (occurrence: None)
  Receive Date: 20040116
  Receipt Date: 20040109
  Transmission Date: 20041129
  Serious: Yes (Hospitalization)
  Sender: FDA-Public Use
  Company Number: FR-GLAXOSMITHKLINE-B0319359A

PATIENT
  Age: 83 Year
  Sex: Female

DRUGS (4)
  1. AUGMENTIN '125' [Suspect]
     Route: 065
  2. DI ANTALVIC [Suspect]
     Route: 048
  3. AMAREL [Suspect]
     Route: 065
  4. TAVANIC [Suspect]
     Route: 065

REACTIONS (2)
  - BLOOD ALKALINE PHOSPHATASE INCREASED [None]
  - GAMMA-GLUTAMYLTRANSFERASE INCREASED [None]
